FAERS Safety Report 17047954 (Version 1)
Quarter: 2019Q4

REPORT INFORMATION
  Report Type: Report from Study
  Country: US (occurrence: US)
  Receive Date: 20191119
  Receipt Date: 20191119
  Transmission Date: 20200122
  Serious: Yes (Hospitalization)
  Sender: FDA-Public Use
  Company Number: US-EISAI MEDICAL RESEARCH-EC-2019-061977

PATIENT
  Age: 82 Year
  Sex: Male

DRUGS (3)
  1. LENVIMA [Suspect]
     Active Substance: LENVATINIB
     Route: 048
     Dates: start: 20191007, end: 2019
  2. KEFLEX [Concomitant]
     Active Substance: CEPHALEXIN
  3. LENVIMA [Suspect]
     Active Substance: LENVATINIB
     Indication: HEPATOCELLULAR CARCINOMA
     Route: 048
     Dates: start: 20190830, end: 20191006

REACTIONS (6)
  - Cellulitis [Not Recovered/Not Resolved]
  - Diarrhoea [Recovering/Resolving]
  - Blood pressure increased [Not Recovered/Not Resolved]
  - Vomiting [Recovering/Resolving]
  - Pruritus [Not Recovered/Not Resolved]
  - Erythema [Not Recovered/Not Resolved]

NARRATIVE: CASE EVENT DATE: 2019
